FAERS Safety Report 10675918 (Version 2)
Quarter: 2015Q1

REPORT INFORMATION
  Report Type: Spontaneous
  Country: CA (occurrence: CA)
  Receive Date: 20141225
  Receipt Date: 20150203
  Transmission Date: 20150720
  Serious: Yes (Other)
  Sender: FDA-Public Use
  Company Number: CA-ROCHE-1513816

PATIENT
  Sex: Female

DRUGS (4)
  1. XOLAIR [Suspect]
     Active Substance: OMALIZUMAB
     Indication: ASTHMA
     Route: 058
     Dates: start: 20130920, end: 20141106
  2. NASOCORT [Concomitant]
     Active Substance: TRIAMCINOLONE ACETONIDE
  3. ADVAIR HFA [Concomitant]
     Active Substance: FLUTICASONE PROPIONATE\SALMETEROL XINAFOATE
  4. ALVESCO [Concomitant]
     Active Substance: CICLESONIDE

REACTIONS (8)
  - Sensitivity to weather change [Unknown]
  - Feeling abnormal [Unknown]
  - Asthma [Unknown]
  - Fatigue [Unknown]
  - Asphyxia [Unknown]
  - Asthenia [Unknown]
  - Pain in extremity [Unknown]
  - Dizziness [Recovered/Resolved]

NARRATIVE: CASE EVENT DATE: 2014
